FAERS Safety Report 7310617-2 (Version None)
Quarter: 2011Q1

REPORT INFORMATION
  Report Type: 
  Country: None (occurrence: None)
  Receive Date: 20110224
  Receipt Date: 20100422
  Transmission Date: 20110831
  Serious: No
  Sender: FDA-Public Use
  Company Number: US-BRISTOL-MYERS SQUIBB COMPANY-15077407

PATIENT
  Age: 56 Year
  Sex: Female

DRUGS (4)
  1. BENICAR [Suspect]
     Indication: HYPERTENSION
  2. METFORMIN HCL [Suspect]
  3. ADVAIR HFA [Suspect]
     Indication: ASTHMA
  4. VICODIN [Suspect]
     Indication: BACK PAIN

REACTIONS (1)
  - BLOOD GLUCOSE DECREASED [None]
